FAERS Safety Report 4378441-0 (Version None)
Quarter: 2004Q2

REPORT INFORMATION
  Report Type: 
  Country: None (occurrence: None)
  Receive Date: 20040609
  Receipt Date: 20040528
  Transmission Date: 20050107
  Serious: No
  Sender: FDA-Public Use
  Company Number: 04P-163-0262348-00

PATIENT
  Age: 47 Year
  Sex: Female
  Weight: 78.9259 kg

DRUGS (3)
  1. TRICOR [Suspect]
     Indication: BLOOD TRIGLYCERIDES INCREASED
     Dosage: 160 MG, 1 IN 1 D, PER ORAL
     Route: 048
     Dates: start: 20040503, end: 20040510
  2. KARVEA HCT [Concomitant]
  3. FEXOFENADINE HYDROCHLORIDE [Concomitant]

REACTIONS (5)
  - DYSPHAGIA [None]
  - INFECTION [None]
  - INFLAMMATION [None]
  - SWELLING FACE [None]
  - URTICARIA [None]
